FAERS Safety Report 18870021 (Version 2)
Quarter: 2021Q4

REPORT INFORMATION
  Report Type: Report from Study
  Country: NL (occurrence: NL)
  Receive Date: 20210209
  Receipt Date: 20211210
  Transmission Date: 20220303
  Serious: Yes (Hospitalization)
  Sender: FDA-Public Use
  Company Number: NL-BIOMARINAP-NL-2020-129052

PATIENT
  Age: 6 Year
  Sex: Male
  Weight: 12.4 kg

DRUGS (1)
  1. VIMIZIM [Suspect]
     Active Substance: ELOSULFASE ALFA
     Indication: Mucopolysaccharidosis IV
     Dosage: UNK
     Route: 042
     Dates: start: 20150212

REACTIONS (1)
  - Adenoidal hypertrophy [Recovered/Resolved]

NARRATIVE: CASE EVENT DATE: 20180827
